FAERS Safety Report 26215074 (Version 1)
Quarter: 2025Q4

REPORT INFORMATION
  Report Type: Spontaneous
  Country: US (occurrence: US)
  Receive Date: 20251230
  Receipt Date: 20251230
  Transmission Date: 20260118
  Serious: Yes (Hospitalization, Other)
  Sender: BOEHRINGER INGELHEIM
  Company Number: US-Komodo Health-a23aa00000CugDlAAJ

PATIENT
  Age: 62 Year
  Sex: Male

DRUGS (1)
  1. STIOLTO RESPIMAT [Suspect]
     Active Substance: OLODATEROL HYDROCHLORIDE\TIOTROPIUM BROMIDE MONOHYDRATE
     Indication: Chronic obstructive pulmonary disease
     Dosage: 2 PUFFS

REACTIONS (3)
  - Cerebrovascular accident [Recovered/Resolved]
  - Cerebrovascular accident [Unknown]
  - Cerebrovascular accident [Unknown]

NARRATIVE: CASE EVENT DATE: 20241103
